FAERS Safety Report 21742365 (Version 2)
Quarter: 2022Q4

REPORT INFORMATION
  Report Type: Spontaneous
  Country: JP (occurrence: JP)
  Receive Date: 20221216
  Receipt Date: 20221227
  Transmission Date: 20230112
  Serious: Yes (Hospitalization)
  Sender: FDA-Public Use
  Company Number: JP-LUNDBECK-DKLU3056038

PATIENT
  Age: 80 Year
  Sex: Female

DRUGS (2)
  1. DROXIDOPA [Suspect]
     Active Substance: DROXIDOPA
     Indication: Parkinson^s disease
     Route: 048
  2. DROXIDOPA [Suspect]
     Active Substance: DROXIDOPA
     Route: 048

REACTIONS (2)
  - COVID-19 [Unknown]
  - Overdose [Unknown]
